FAERS Safety Report 12415067 (Version 1)
Quarter: 2016Q2

REPORT INFORMATION
  Report Type: Spontaneous
  Country: JP (occurrence: JP)
  Receive Date: 20160530
  Receipt Date: 20160530
  Transmission Date: 20160815
  Serious: Yes (Other)
  Sender: FDA-Public Use
  Company Number: JP-ORION CORPORATION ORION PHARMA-ENTC2016-0261

PATIENT
  Sex: Male

DRUGS (1)
  1. STALEVO [Suspect]
     Active Substance: CARBIDOPA\ENTACAPONE\LEVODOPA
     Indication: PARKINSON^S DISEASE
     Route: 048
     Dates: start: 2015

REACTIONS (11)
  - Chromaturia [Unknown]
  - Drug effect delayed [Unknown]
  - Foreign body sensation in eyes [Unknown]
  - Drug dose omission [Unknown]
  - Feeling abnormal [Unknown]
  - Vision blurred [Unknown]
  - Orthostatic hypotension [Unknown]
  - Somnolence [Unknown]
  - Asthenia [Unknown]
  - Hypoaesthesia [Unknown]
  - Sudden onset of sleep [Unknown]
